FAERS Safety Report 7012468-5 (Version None)
Quarter: 2010Q3

REPORT INFORMATION
  Report Type: 
  Country: None (occurrence: None)
  Receive Date: 20100924
  Receipt Date: 20100914
  Transmission Date: 20110219
  Serious: Yes (Other)
  Sender: FDA-Public Use
  Company Number: US-SANOFI-AVENTIS-2010SA055422

PATIENT
  Age: 78 Year
  Sex: Female
  Weight: 63 kg

DRUGS (11)
  1. ENOXAPARIN SODIUM [Suspect]
     Route: 058
     Dates: start: 20080222
  2. HEPARIN SODIUM/SODIUM CHLORIDE [Suspect]
     Dosage: DOSE:25000 UNIT(S)
     Route: 041
     Dates: start: 20080221, end: 20080222
  3. INTEGRILIN [Suspect]
     Route: 051
     Dates: start: 20080221, end: 20080222
  4. CENTRUM [Concomitant]
  5. ASCORBIC ACID [Concomitant]
  6. CALCIUM [Concomitant]
  7. NITROGLYCERIN ^SLOVAKOFARMA^ [Concomitant]
  8. LOPRESSOR [Concomitant]
  9. PLAVIX [Concomitant]
  10. ASPIRIN [Concomitant]
  11. MORPHINE SULFATE [Concomitant]

REACTIONS (14)
  - ABDOMINAL PAIN [None]
  - ASTHENIA [None]
  - COLLAPSE OF LUNG [None]
  - DYSPNOEA [None]
  - HEADACHE [None]
  - HEPATIC FAILURE [None]
  - HYPERSENSITIVITY [None]
  - OEDEMA MOUTH [None]
  - PHARYNGEAL OEDEMA [None]
  - RENAL FAILURE [None]
  - SWELLING FACE [None]
  - SYNCOPE [None]
  - THROMBOCYTOPENIA [None]
  - VOMITING [None]
